FAERS Safety Report 7865947-2 (Version None)
Quarter: 2011Q4

REPORT INFORMATION
  Report Type: 
  Country: None (occurrence: None)
  Receive Date: 20111028
  Receipt Date: 20110324
  Transmission Date: 20120403
  Serious: No
  Sender: FDA-Public Use
  Company Number: US-GLAXOSMITHKLINE-A0919831A

PATIENT
  Age: 64 Year
  Sex: Female

DRUGS (4)
  1. VITAMIN TAB [Concomitant]
  2. XOPENEX [Concomitant]
  3. SPIRIVA [Concomitant]
  4. ADVAIR DISKUS 100/50 [Suspect]
     Indication: CHRONIC OBSTRUCTIVE PULMONARY DISEASE
     Dosage: 1PUFF PER DAY
     Route: 055
     Dates: start: 20100316

REACTIONS (5)
  - MUSCLE SPASMS [None]
  - OESOPHAGEAL SPASM [None]
  - HYPERSENSITIVITY [None]
  - RASH [None]
  - DYSPHAGIA [None]
